FAERS Safety Report 22153556 (Version 2)
Quarter: 2023Q2

REPORT INFORMATION
  Report Type: Report from Study
  Country: IT (occurrence: IT)
  Receive Date: 20230330
  Receipt Date: 20230412
  Transmission Date: 20230722
  Serious: Yes (Other)
  Sender: FDA-Public Use
  Company Number: IT-GILEAD-2023-0621709

PATIENT
  Age: 65 Year
  Sex: Female

DRUGS (2)
  1. EMTRICITABINE\TENOFOVIR [Suspect]
     Active Substance: EMTRICITABINE\TENOFOVIR
     Indication: HIV infection
     Dosage: 1 DOSAGE FORM, QD
     Route: 065
  2. ISENTRESS [Concomitant]
     Active Substance: RALTEGRAVIR POTASSIUM
     Indication: HIV infection

REACTIONS (33)
  - Suicidal ideation [Unknown]
  - General physical health deterioration [Not Recovered/Not Resolved]
  - Loss of personal independence in daily activities [Not Recovered/Not Resolved]
  - Gait disturbance [Not Recovered/Not Resolved]
  - Performance status decreased [Unknown]
  - Emotional disorder [Unknown]
  - Depression [Unknown]
  - Disturbance in attention [Unknown]
  - Pain [Unknown]
  - Disturbance in social behaviour [Unknown]
  - Anxiety [Unknown]
  - Mood altered [Unknown]
  - Amnesia [Unknown]
  - Decreased interest [Unknown]
  - Feeling of despair [Unknown]
  - Initial insomnia [Unknown]
  - Middle insomnia [Unknown]
  - Hypersomnia [Unknown]
  - Fatigue [Unknown]
  - Asthenia [Unknown]
  - Decreased appetite [Unknown]
  - Hyperphagia [Unknown]
  - Feeling abnormal [Unknown]
  - Insomnia [Unknown]
  - Bradykinesia [Unknown]
  - Slow speech [Unknown]
  - Restlessness [Unknown]
  - Self-injurious ideation [Unknown]
  - Terminal insomnia [Unknown]
  - Nocturia [Unknown]
  - Feeling cold [Unknown]
  - Feeling hot [Unknown]
  - Bone pain [Unknown]
